FAERS Safety Report 15403766 (Version 1)
Quarter: 2018Q3

REPORT INFORMATION
  Report Type: Spontaneous
  Country: JP (occurrence: JP)
  Receive Date: 20180919
  Receipt Date: 20180919
  Transmission Date: 20181010
  Serious: Yes (Other)
  Sender: FDA-Public Use
  Company Number: JP-PFIZER INC-2018379522

PATIENT
  Age: 60 Year
  Sex: Female

DRUGS (5)
  1. 5 FU [Suspect]
     Active Substance: FLUOROURACIL
     Indication: CHEMOTHERAPY
     Dosage: 500 MG, 1X/DAY
     Route: 013
     Dates: start: 20180303, end: 20180303
  2. FARMORUBICIN [Suspect]
     Active Substance: EPIRUBICIN HYDROCHLORIDE
     Indication: CHEMOTHERAPY
     Dosage: 20 MG, 1X/DAY
     Route: 013
     Dates: start: 20180303, end: 20180303
  3. CISPLATIN. [Suspect]
     Active Substance: CISPLATIN
     Indication: CHEMOTHERAPY
     Dosage: 20 MG, 1X/DAY
     Route: 013
     Dates: start: 20180303, end: 20180303
  4. FARMORUBICIN [Suspect]
     Active Substance: EPIRUBICIN HYDROCHLORIDE
     Dosage: 20 MG, 1X/DAY
     Route: 013
     Dates: start: 20180519, end: 20180519
  5. CISPLATIN. [Suspect]
     Active Substance: CISPLATIN
     Dosage: 20 MG, 1X/DAY
     Route: 013
     Dates: start: 20180519, end: 20180519

REACTIONS (1)
  - Hydronephrosis [Unknown]

NARRATIVE: CASE EVENT DATE: 20180328
